FAERS Safety Report 17731708 (Version 3)
Quarter: 2021Q2

REPORT INFORMATION
  Report Type: Report from Study
  Country: FR (occurrence: FR)
  Receive Date: 20200501
  Receipt Date: 20210414
  Transmission Date: 20210716
  Serious: Yes (Death, Hospitalization, Other)
  Sender: FDA-Public Use
  Company Number: FR-TAKEDA-2019TUS058290

PATIENT
  Sex: Male
  Weight: 69 kg

DRUGS (3)
  1. DEXAMETHASONE. [Suspect]
     Active Substance: DEXAMETHASONE
     Indication: PLASMA CELL MYELOMA
     Dosage: 20 MILLIGRAM
     Route: 048
     Dates: start: 20181210, end: 20190911
  2. REVLIMID [Suspect]
     Active Substance: LENALIDOMIDE
     Indication: PLASMA CELL MYELOMA
     Dosage: 15 MILLIGRAM
     Route: 048
     Dates: start: 20181210, end: 20190911
  3. IXAZOMIB [Suspect]
     Active Substance: IXAZOMIB
     Indication: PLASMA CELL MYELOMA
     Dosage: 4 MILLIGRAM
     Route: 048
     Dates: start: 20181210, end: 20190911

REACTIONS (8)
  - Cardiac failure [Fatal]
  - Pleural effusion [Fatal]
  - Septic shock [Recovered/Resolved]
  - Lung disorder [Fatal]
  - Atrial fibrillation [Unknown]
  - Pulmonary embolism [Recovered/Resolved]
  - Pneumonia [Fatal]
  - Cognitive disorder [Unknown]

NARRATIVE: CASE EVENT DATE: 20190822
